FAERS Safety Report 12972121 (Version 1)
Quarter: 2016Q4

REPORT INFORMATION
  Report Type: Spontaneous
  Country: SI (occurrence: SI)
  Receive Date: 20161124
  Receipt Date: 20161124
  Transmission Date: 20170207
  Serious: Yes (Life-Threatening)
  Sender: FDA-Public Use
  Company Number: SI-ACCORD-045747

PATIENT
  Age: 41 Year
  Sex: Female

DRUGS (6)
  1. REGLAN [Concomitant]
     Active Substance: METOCLOPRAMIDE HYDROCHLORIDE
  2. APREPITANT. [Concomitant]
     Active Substance: APREPITANT
  3. GRANISETRON [Concomitant]
     Active Substance: GRANISETRON
  4. CISPLATIN ACCORD [Suspect]
     Active Substance: CISPLATIN
     Indication: OSTEOSARCOMA
     Dosage: STRENGTH: 1 MG/ML
     Route: 042
     Dates: start: 20161017, end: 20161018
  5. DIAZEPAM. [Concomitant]
     Active Substance: DIAZEPAM
  6. DEXAMETHASONE. [Concomitant]
     Active Substance: DEXAMETHASONE

REACTIONS (5)
  - Acute kidney injury [Unknown]
  - Hypokalaemia [Unknown]
  - Haematuria [Unknown]
  - Off label use [Unknown]
  - Hypomagnesaemia [Unknown]

NARRATIVE: CASE EVENT DATE: 20161018
